FAERS Safety Report 18751613 (Version 1)
Quarter: 2021Q1

REPORT INFORMATION
  Report Type: Report from Study
  Country: VN (occurrence: VN)
  Receive Date: 20210118
  Receipt Date: 20210118
  Transmission Date: 20210419
  Serious: Yes (Hospitalization)
  Sender: FDA-Public Use
  Company Number: NVSC2021VN008548

PATIENT
  Age: 41 Year
  Sex: Male
  Weight: 87 kg

DRUGS (1)
  1. FRAIZERON [Suspect]
     Active Substance: SECUKINUMAB
     Indication: PSORIASIS
     Dosage: 300 MG, UNKNOWN
     Route: 058

REACTIONS (1)
  - Wrist fracture [Recovering/Resolving]

NARRATIVE: CASE EVENT DATE: 20210104
